FAERS Safety Report 6678791-9 (Version None)
Quarter: 2010Q2

REPORT INFORMATION
  Report Type: 
  Country: None (occurrence: None)
  Receive Date: 20100402
  Receipt Date: 20090616
  Transmission Date: 20101027
  Serious: No
  Sender: FDA-Public Use
  Company Number: 2009-00530

PATIENT
  Age: 50 Year
  Sex: Female
  Weight: 63.05 kg

DRUGS (1)
  1. ZICAM EXTREME CONGESTION RELIEF [Suspect]
     Dosage: MID 1998 -
     Dates: start: 19980101

REACTIONS (2)
  - AGEUSIA [None]
  - ANOSMIA [None]
